FAERS Safety Report 24634490 (Version 2)
Quarter: 2024Q4

REPORT INFORMATION
  Report Type: Spontaneous
  Country: CN (occurrence: CN)
  Receive Date: 20241119
  Receipt Date: 20241126
  Transmission Date: 20250115
  Serious: Yes (Hospitalization)
  Sender: SANDOZ
  Company Number: CN-002147023-NVSC2024CN219746

PATIENT
  Age: 68 Year
  Sex: Male
  Weight: 68 kg

DRUGS (2)
  1. DEXAMETHASONE\TOBRAMYCIN [Suspect]
     Active Substance: DEXAMETHASONE\TOBRAMYCIN
     Indication: Keratitis
     Dosage: 0.02 G, QD
     Route: 047
     Dates: start: 20240902, end: 20240903
  2. SODIUM HYALURONATE [Suspect]
     Active Substance: HYALURONATE SODIUM
     Indication: Keratitis
     Dosage: 0.02 G, QID
     Route: 047
     Dates: start: 20240902, end: 20240903

REACTIONS (6)
  - Rash [Recovering/Resolving]
  - Cheilitis [Recovering/Resolving]
  - Glossitis [Recovering/Resolving]
  - Anal erythema [Recovering/Resolving]
  - Swelling [Recovering/Resolving]
  - Pruritus [Recovering/Resolving]

NARRATIVE: CASE EVENT DATE: 20240903
